FAERS Safety Report 10994494 (Version 1)
Quarter: 2015Q2

REPORT INFORMATION
  Report Type: Spontaneous
  Country: US (occurrence: None)
  Receive Date: 20150406
  Receipt Date: 20150406
  Transmission Date: 20150821
  Serious: No
  Sender: FDA-Public Use
  Company Number: None

PATIENT
  Age: 23 Year
  Sex: Female
  Weight: 68.04 kg

DRUGS (4)
  1. SINGULAIR [Concomitant]
     Active Substance: MONTELUKAST SODIUM
  2. CLARITIN [Concomitant]
     Active Substance: LORATADINE
  3. ADVAIR DISKUS [Suspect]
     Active Substance: FLUTICASONE PROPIONATE\SALMETEROL XINAFOATE
     Indication: ASTHMA
     Dosage: 1 PUFF TWICE DAILY
     Route: 048
     Dates: start: 20150328, end: 20150401
  4. IBUPROFEN. [Concomitant]
     Active Substance: IBUPROFEN

REACTIONS (4)
  - Abdominal pain upper [None]
  - Drug hypersensitivity [None]
  - Abnormal faeces [None]
  - Cardiac flutter [None]

NARRATIVE: CASE EVENT DATE: 20150402
